FAERS Safety Report 20993081 (Version 1)
Quarter: 2022Q2

REPORT INFORMATION
  Report Type: Spontaneous
  Country: US (occurrence: None)
  Receive Date: 20220622
  Receipt Date: 20220622
  Transmission Date: 20220721
  Serious: No
  Sender: FDA-Public Use
  Company Number: None

PATIENT
  Age: 84 Year
  Sex: Male

DRUGS (23)
  1. ERLOTINIB [Suspect]
     Active Substance: ERLOTINIB
     Indication: Pancreatic carcinoma
     Dosage: FREQUENCY : DAILY;?
     Route: 048
     Dates: start: 20220525
  2. CLOPIDOGREL [Concomitant]
  3. DAILY MULTIVITAMIN [Concomitant]
  4. ELIQUIS [Concomitant]
  5. FLUTICASONE [Concomitant]
  6. GABAPENTIN [Concomitant]
  7. GEMZAR [Concomitant]
  8. INSULIN [Concomitant]
  9. ISOSORBIDE [Concomitant]
     Active Substance: ISOSORBIDE
  10. LANTUS [Concomitant]
  11. LASIX [Concomitant]
     Active Substance: FUROSEMIDE
  12. LOSARTAN [Concomitant]
  13. LOVASTATIN [Concomitant]
  14. METFORMIN [Concomitant]
  15. METOPROLOL [Concomitant]
     Active Substance: METOPROLOL
  16. NIFEDIPINE [Concomitant]
  17. ONDANSETRON [Concomitant]
  18. POTASSIUM [Concomitant]
     Active Substance: POTASSIUM
  19. TAMSULOSIN [Concomitant]
  20. VITAMIN B6 [Concomitant]
     Active Substance: PYRIDOXINE HYDROCHLORIDE
  21. VITAMIN C [Concomitant]
  22. WIXELA [Concomitant]
  23. ZYRTEC [Concomitant]

REACTIONS (1)
  - Disease progression [None]
